FAERS Safety Report 13166034 (Version 1)
Quarter: 2017Q1

REPORT INFORMATION
  Report Type: Spontaneous
  Country: US (occurrence: US)
  Receive Date: 20170131
  Receipt Date: 20170131
  Transmission Date: 20170428
  Serious: Yes (Other)
  Sender: FDA-Public Use
  Company Number: US-ROCHE-1882228

PATIENT
  Sex: Female
  Weight: 40.86 kg

DRUGS (2)
  1. OXYCODONE HYDROCHLORIDE. [Suspect]
     Active Substance: OXYCODONE HYDROCHLORIDE
     Indication: PAIN MANAGEMENT
     Dosage: 15 MG, 3 IN 1 D
     Route: 065
  2. KLONOPIN [Suspect]
     Active Substance: CLONAZEPAM
     Indication: ANXIETY
     Route: 065

REACTIONS (16)
  - Skin wrinkling [Not Recovered/Not Resolved]
  - Drug withdrawal syndrome [Unknown]
  - Toxic shock syndrome [Not Recovered/Not Resolved]
  - Insomnia [Not Recovered/Not Resolved]
  - Oedema [Not Recovered/Not Resolved]
  - Trichorrhexis [Not Recovered/Not Resolved]
  - Alopecia [Unknown]
  - Gingival ulceration [Not Recovered/Not Resolved]
  - Hair colour changes [Not Recovered/Not Resolved]
  - Erythema [Not Recovered/Not Resolved]
  - Lip dry [Not Recovered/Not Resolved]
  - Hair injury [Not Recovered/Not Resolved]
  - Bone loss [Unknown]
  - Gingival recession [Not Recovered/Not Resolved]
  - Hyperaesthesia [Not Recovered/Not Resolved]
  - Allergy to chemicals [Not Recovered/Not Resolved]
